FAERS Safety Report 24987552 (Version 1)
Quarter: 2025Q1

REPORT INFORMATION
  Report Type: Spontaneous
  Country: CA (occurrence: CA)
  Receive Date: 20250219
  Receipt Date: 20250219
  Transmission Date: 20250408
  Serious: Yes (Hospitalization)
  Sender: VERTEX
  Company Number: CA-VERTEX PHARMACEUTICALS-2024-002329

PATIENT
  Age: 0 Year
  Sex: Female

DRUGS (1)
  1. TRIKAFTA [Suspect]
     Active Substance: ELEXACAFTOR\IVACAFTOR\TEZACAFTOR
     Indication: Cystic fibrosis
     Dosage: 69 MG IN AM AND 39 MG IN PM
     Route: 048
     Dates: start: 20231122

REACTIONS (2)
  - Intensive care [Unknown]
  - Off label use [Unknown]

NARRATIVE: CASE EVENT DATE: 20231122
